FAERS Safety Report 9677311 (Version 1)
Quarter: 2013Q4

REPORT INFORMATION
  Report Type: Spontaneous
  Country: US (occurrence: None)
  Receive Date: 20131107
  Receipt Date: 20131107
  Transmission Date: 20140711
  Serious: Yes (Hospitalization)
  Sender: FDA-Public Use
  Company Number: None

PATIENT
  Age: 51 Year
  Sex: Female
  Weight: 86.18 kg

DRUGS (4)
  1. CIPRO [Suspect]
     Indication: URINARY TRACT INFECTION
     Dosage: 1 PILL ONCE DAILY TAKEN BY MOUTH
     Dates: start: 20131009, end: 20131013
  2. CIPRO [Suspect]
     Indication: POST PROCEDURAL INFECTION
     Dosage: 1 PILL ONCE DAILY TAKEN BY MOUTH
     Dates: start: 20131009, end: 20131013
  3. LEVOFLOXACIN [Suspect]
     Indication: ABSCESS
     Dosage: 1 PILL ONCE DAILY TAKEN BY MOUTH
     Dates: start: 20131018, end: 20131020
  4. LEVOFLOXACIN [Suspect]
     Indication: POST PROCEDURAL COMPLICATION
     Dosage: 1 PILL ONCE DAILY TAKEN BY MOUTH
     Dates: start: 20131018, end: 20131020

REACTIONS (7)
  - Arthralgia [None]
  - Neck pain [None]
  - Back pain [None]
  - Arthralgia [None]
  - Abdominal abscess [None]
  - Movement disorder [None]
  - Gait disturbance [None]
